FAERS Safety Report 9593217 (Version 1)
Quarter: 2013Q3

REPORT INFORMATION
  Report Type: Spontaneous
  Country: US (occurrence: None)
  Receive Date: 20130930
  Receipt Date: 20130930
  Transmission Date: 20140515
  Serious: Yes (Other)
  Sender: FDA-Public Use
  Company Number: 1000046754

PATIENT
  Age: 80 Year
  Sex: Female

DRUGS (5)
  1. LINZESS (LINACLOTIDE) (145 MICROGRAM, CAPSULES) [Suspect]
     Indication: CONSTIPATION
     Dosage: 145 MCG (145 MCG, 1 IN 1 D), ORAL
     Route: 048
     Dates: start: 20130703, end: 20130703
  2. BYSTOLIC (NEBIVOLOL HYDROCHLORIDE) (NEBIVOLOL HYDROCHLORIDE) [Concomitant]
  3. LOSARTAN (LOSARTAN) (LOSARTAN) [Concomitant]
  4. POTASSIUM (POTASSIUM) (POTASSIUM) [Concomitant]
  5. INSULIN (INSULIN) (INSULIN) [Concomitant]

REACTIONS (2)
  - Diarrhoea [None]
  - Tremor [None]
